FAERS Safety Report 12682858 (Version 3)
Quarter: 2016Q3

REPORT INFORMATION
  Report Type: Report from Study
  Country: US (occurrence: US)
  Receive Date: 20160825
  Receipt Date: 20160929
  Transmission Date: 20161109
  Serious: No
  Sender: FDA-Public Use
  Company Number: US-ASTRAZENECA-2016SE84245

PATIENT
  Sex: Female
  Weight: 74.4 kg

DRUGS (6)
  1. LORTAB [Concomitant]
     Active Substance: ACETAMINOPHEN\HYDROCODONE BITARTRATE
     Indication: PAIN
     Dosage: AS REQUIRED, IN THE MORNING
     Route: 048
  2. SYMBICORT [Suspect]
     Active Substance: BUDESONIDE\FORMOTEROL FUMARATE DIHYDRATE
     Indication: CHRONIC OBSTRUCTIVE PULMONARY DISEASE
     Dosage: 2 PUFFS TWICE A DAY
     Route: 055
     Dates: start: 201201
  3. IPRATROPIUM BROMIDE. [Concomitant]
     Active Substance: IPRATROPIUM BROMIDE
     Indication: DYSPNOEA
     Dosage: 0.5MG UNKNOWN
     Route: 055
  4. BREO ELLIPTA [Concomitant]
     Active Substance: FLUTICASONE FUROATE\VILANTEROL TRIFENATATE
  5. SYMBICORT [Suspect]
     Active Substance: BUDESONIDE\FORMOTEROL FUMARATE DIHYDRATE
     Indication: CHRONIC OBSTRUCTIVE PULMONARY DISEASE
     Route: 055
  6. VENTOLIN HFA INHALER [Concomitant]
     Indication: DYSPNOEA
     Route: 055

REACTIONS (16)
  - Mental impairment [Unknown]
  - Back pain [Unknown]
  - Intentional product misuse [Unknown]
  - Amnesia [Unknown]
  - Skin irritation [Unknown]
  - Hypoacusis [Unknown]
  - Visual impairment [Unknown]
  - Intervertebral disc protrusion [Unknown]
  - Malaise [Unknown]
  - Chest pain [Unknown]
  - Gait disturbance [Unknown]
  - Scar [Unknown]
  - Neck pain [Unknown]
  - Headache [Unknown]
  - Body height decreased [Unknown]
  - Activities of daily living impaired [Unknown]
